FAERS Safety Report 4517973-9 (Version None)
Quarter: 2004Q4

REPORT INFORMATION
  Report Type: 
  Country: None (occurrence: None)
  Receive Date: 20041130
  Receipt Date: 20041111
  Transmission Date: 20050328
  Serious: Yes (Other)
  Sender: FDA-Public Use
  Company Number: USA041183667

PATIENT
  Age: 53 Year
  Sex: Female

DRUGS (2)
  1. EVISTA [Suspect]
     Indication: BREAST CANCER
     Dates: start: 19990101, end: 20040101
  2. EVISTA [Suspect]
     Indication: PROPHYLAXIS
     Dates: start: 19990101, end: 20040101

REACTIONS (1)
  - UTERINE CANCER [None]
